FAERS Safety Report 18623076 (Version 1)
Quarter: 2020Q4

REPORT INFORMATION
  Report Type: Spontaneous
  Country: US (occurrence: US)
  Receive Date: 20201216
  Receipt Date: 20201216
  Transmission Date: 20210114
  Serious: No
  Sender: FDA-Public Use
  Company Number: US-TAKEDA-US202031007

PATIENT
  Age: 84 Year
  Sex: Female
  Weight: 77 kg

DRUGS (1)
  1. MOTEGRITY [Suspect]
     Active Substance: PRUCALOPRIDE SUCCINATE
     Indication: IMPAIRED GASTRIC EMPTYING
     Dosage: 2 MILLIGRAM, 1X/DAY:QD
     Route: 065

REACTIONS (3)
  - Product availability issue [Unknown]
  - No adverse event [Unknown]
  - Inappropriate schedule of product administration [Unknown]
